FAERS Safety Report 8859966 (Version 1)
Quarter: 2012Q4

REPORT INFORMATION
  Report Type: 
  Country: US (occurrence: US)
  Receive Date: 20121025
  Receipt Date: 20121025
  Transmission Date: 20130627
  Serious: No
  Sender: FDA-Public Use
  Company Number: US-PFIZER INC-2012264522

PATIENT
  Age: 59 Year
  Sex: Female
  Weight: 152.39 kg

DRUGS (2)
  1. ALAVERT [Suspect]
     Indication: HYPERSENSITIVITY
     Dosage: UNK, once a day
     Dates: start: 201210, end: 201210
  2. FLONASE [Suspect]
     Dosage: UNK
     Dates: start: 201210, end: 201210

REACTIONS (4)
  - Blood glucose decreased [Unknown]
  - Nervousness [Unknown]
  - Dizziness [Unknown]
  - Presyncope [Unknown]
